FAERS Safety Report 8544579-7 (Version None)
Quarter: 2012Q2

REPORT INFORMATION
  Report Type: 
  Country: None (occurrence: None)
  Receive Date: 20120416
  Receipt Date: 20101105
  Transmission Date: 20120825
  Serious: Yes (Disabling, Other)
  Sender: FDA-Public Use
  Company Number: PHHY2010US70715

PATIENT
  Age: 72 Year
  Sex: Female

DRUGS (7)
  1. MIACALCIN [Concomitant]
  2. CALMS FORTE (CALMS FORTE) [Concomitant]
  3. ASPIRIN [Concomitant]
  4. DIOVAN [Suspect]
     Dosage: 80 MG ONCE DIALY ; 160 MG ; 320 MG, QD
     Dates: start: 20100601
  5. DIOVAN [Suspect]
     Dosage: 80 MG ONCE DIALY ; 160 MG ; 320 MG, QD
     Dates: start: 20100831, end: 20101020
  6. XANAX [Concomitant]
  7. CALCIUM + MAGNESIUM + ZINC (CALCIUM, MAGNESIUM, ZINC) [Concomitant]

REACTIONS (9)
  - MUSCULAR WEAKNESS [None]
  - INSOMNIA [None]
  - RENAL FAILURE [None]
  - FEELING HOT [None]
  - TONGUE DRY [None]
  - NIGHTMARE [None]
  - CHROMATURIA [None]
  - DYSURIA [None]
  - POLLAKIURIA [None]
